FAERS Safety Report 21584413 (Version 4)
Quarter: 2025Q3

REPORT INFORMATION
  Report Type: Spontaneous
  Country: JP (occurrence: JP)
  Receive Date: 20221111
  Receipt Date: 20250909
  Transmission Date: 20251021
  Serious: Yes (Hospitalization, Other)
  Sender: BAXTER
  Company Number: JP-BAXTER-2022BAX024005

PATIENT
  Age: 54 Year
  Sex: Female

DRUGS (5)
  1. CYCLOPHOSPHAMIDE [Suspect]
     Active Substance: CYCLOPHOSPHAMIDE
     Indication: Bone marrow conditioning regimen
     Route: 065
  2. CYCLOPHOSPHAMIDE [Suspect]
     Active Substance: CYCLOPHOSPHAMIDE
     Route: 065
  3. RANIMUSTINE [Concomitant]
     Active Substance: RANIMUSTINE
     Indication: Bone marrow conditioning regimen
     Route: 065
  4. CARBOPLATIN [Concomitant]
     Active Substance: CARBOPLATIN
     Indication: Bone marrow conditioning regimen
     Route: 065
  5. ETOPOSIDE [Concomitant]
     Active Substance: ETOPOSIDE
     Indication: Bone marrow conditioning regimen
     Route: 065

REACTIONS (12)
  - Low cardiac output syndrome [Recovering/Resolving]
  - Ejection fraction decreased [Recovering/Resolving]
  - Cardiac failure [Recovering/Resolving]
  - Dyspnoea [Recovering/Resolving]
  - Sinus tachycardia [Recovering/Resolving]
  - Cardiomegaly [Recovering/Resolving]
  - Pulmonary congestion [Recovering/Resolving]
  - Troponin I increased [Recovering/Resolving]
  - Brain natriuretic peptide increased [Recovering/Resolving]
  - Left ventricular dysfunction [Recovering/Resolving]
  - Pericardial effusion [Recovering/Resolving]
  - Myocardial oedema [Recovering/Resolving]
